FAERS Safety Report 11364574 (Version 1)
Quarter: 2015Q3

REPORT INFORMATION
  Report Type: Spontaneous
  Country: US (occurrence: None)
  Receive Date: 20150810
  Receipt Date: 20150810
  Transmission Date: 20151125
  Serious: No
  Sender: FDA-Public Use
  Company Number: None

PATIENT
  Age: 47 Year
  Sex: Female
  Weight: 52.16 kg

DRUGS (1)
  1. CUSTOM TOPICAL PAIN CREAM 2% HOYE^S PHARMACY [Suspect]
     Active Substance: AMITRIPTYLINE\FLURBIPROFEN\GABAPENTIN\LIDOCAINE\PRILOCAINE\SODIUM METABISULFITE
     Dosage: 2-4 GRAMS?AS NEEDED ?APPLIED TO A SURGACE USUALLY THE SKIN
     Route: 061

REACTIONS (1)
  - No adverse event [None]

NARRATIVE: CASE EVENT DATE: 20150807
